FAERS Safety Report 11888474 (Version 1)
Quarter: 2016Q1

REPORT INFORMATION
  Report Type: Spontaneous
  Country: CH (occurrence: CH)
  Receive Date: 20160105
  Receipt Date: 20160105
  Transmission Date: 20160526
  Serious: Yes (Other)
  Sender: FDA-Public Use
  Company Number: CH-MYLANLABS-2015M1047693

PATIENT

DRUGS (7)
  1. FLUOROURACIL. [Suspect]
     Active Substance: FLUOROURACIL
     Indication: PANCREATIC CARCINOMA METASTATIC
     Dosage: 4 ADMINISTRATIONS
     Route: 065
     Dates: start: 201212
  2. OXALIPLATIN. [Suspect]
     Active Substance: OXALIPLATIN
     Indication: PANCREATIC CARCINOMA METASTATIC
     Dosage: 4 ADMINISTRATIONS
     Route: 065
     Dates: start: 201212
  3. OXALIPLATIN. [Suspect]
     Active Substance: OXALIPLATIN
     Dosage: 100 MG/M2 EVERY 3 WEEKS
     Route: 065
  4. IRINOTECAN [Concomitant]
     Active Substance: IRINOTECAN
     Indication: PANCREATIC CARCINOMA METASTATIC
     Dosage: 4 ADMINISTRATIONS
     Route: 065
     Dates: start: 201212
  5. IRINOTECAN [Concomitant]
     Active Substance: IRINOTECAN
     Dosage: 220 MG/M2 EVERY 3 WEEKS
     Route: 065
  6. RALTITREXED [Concomitant]
     Active Substance: RALTITREXED
     Indication: PANCREATIC CARCINOMA METASTATIC
     Dosage: 2.75 MG/M2 EVERY 3 WEEKS
     Route: 065
  7. FOLINIC ACID [Concomitant]
     Active Substance: LEUCOVORIN
     Indication: PANCREATIC CARCINOMA METASTATIC
     Dosage: 4 ADMINISTRATIONS
     Route: 065
     Dates: start: 201212

REACTIONS (2)
  - Coronary artery disease [Recovered/Resolved]
  - Peripheral sensory neuropathy [Unknown]
